FAERS Safety Report 17898525 (Version 1)
Quarter: 2020Q2

REPORT INFORMATION
  Report Type: Spontaneous
  Country: BR (occurrence: BR)
  Receive Date: 20200615
  Receipt Date: 20200615
  Transmission Date: 20200714
  Serious: Yes (Hospitalization, Other)
  Sender: FDA-Public Use
  Company Number: BR-ASCEND THERAPEUTICS US, LLC-2085867

PATIENT
  Age: 34 Year
  Sex: Female

DRUGS (3)
  1. ESTROGEL [Suspect]
     Active Substance: ESTRADIOL
     Indication: HORMONE REPLACEMENT THERAPY
     Route: 062
     Dates: start: 20181119, end: 20200305
  2. ESTROGEL [Suspect]
     Active Substance: ESTRADIOL
  3. OESTROGEL (ESTRADIOL) [Suspect]
     Active Substance: ESTRADIOL
     Route: 062

REACTIONS (3)
  - Thrombosis [Not Recovered/Not Resolved]
  - Arrhythmia [Not Recovered/Not Resolved]
  - Product use issue [None]
